FAERS Safety Report 9312539 (Version 1)
Quarter: 2013Q2

REPORT INFORMATION
  Report Type: Spontaneous
  Country: LB (occurrence: None)
  Receive Date: 20130520
  Receipt Date: 20130520
  Transmission Date: 20140414
  Serious: Yes (Hospitalization)
  Sender: FDA-Public Use
  Company Number: IPC201305-000195

PATIENT
  Age: 18 Year
  Sex: Female

DRUGS (5)
  1. HYDROXYCHLOROQUINE SULFATE [Suspect]
  2. PREDNISONE [Suspect]
     Dosage: 5 MG, FOR MORE THAN A YEAR
  3. METHOTREXATE [Suspect]
  4. MOXIFLOXACIN (MOXIFLOXACIN) (MOXIFLOXACIN) [Concomitant]
  5. HYDROCORTISONE (HYDROCORTISONE) (HYDROCORTISONE) [Concomitant]

REACTIONS (2)
  - Salmonella bacteraemia [None]
  - Arthritis bacterial [None]
